FAERS Safety Report 21754878 (Version 1)
Quarter: 2022Q4

REPORT INFORMATION
  Report Type: Spontaneous
  Country: US (occurrence: US)
  Receive Date: 20221220
  Receipt Date: 20221220
  Transmission Date: 20230113
  Serious: Yes (Hospitalization, Other)
  Sender: FDA-Public Use
  Company Number: US-Accord-292476

PATIENT
  Age: 16 Year
  Sex: Female

DRUGS (3)
  1. ARIPIPRAZOLE [Suspect]
     Active Substance: ARIPIPRAZOLE
     Indication: Psychotic disorder
     Dosage: 2 MG DAILY, TITRATED UPWARD AND REACHED 10 MG ON HOSPITAL DAY SEVEN WITH GOOD TOLERABILITY
     Route: 048
  2. ESCITALOPRAM [Suspect]
     Active Substance: ESCITALOPRAM OXALATE
     Indication: Depression
     Dosage: INCREASED TO 10 MG ON HOSPITAL DAY SEVEN, THEN REDUCED TO 5 MG DAILY
  3. OLANZAPINE [Suspect]
     Active Substance: OLANZAPINE
     Indication: Psychotic disorder
     Dosage: SLOWLY UP TO 12.5 MG AT BEDTIME

REACTIONS (3)
  - Mania [Recovered/Resolved]
  - Delusion of grandeur [Recovered/Resolved]
  - Treatment failure [Unknown]
